FAERS Safety Report 6047645-3 (Version None)
Quarter: 2009Q1

REPORT INFORMATION
  Report Type: 
  Country: None (occurrence: None)
  Receive Date: 20090123
  Receipt Date: 20081010
  Transmission Date: 20090719
  Serious: Yes (Disabling)
  Sender: FDA-Public Use
  Company Number: A0751349A

PATIENT
  Age: 66 Year
  Sex: Female

DRUGS (8)
  1. HYCAMTIN [Suspect]
     Dosage: 6.8MG WEEKLY
     Route: 042
     Dates: start: 20080929
  2. COUMADIN [Concomitant]
  3. FENTANYL [Concomitant]
  4. LISINOPRIL [Concomitant]
  5. REGLAN [Concomitant]
  6. METOPROLOL TARTRATE [Concomitant]
  7. LORAZEPAM [Concomitant]
  8. OXYCODONE [Concomitant]

REACTIONS (3)
  - CHILLS [None]
  - INFECTION [None]
  - PYREXIA [None]
